FAERS Safety Report 20112575 (Version 2)
Quarter: 2021Q4

REPORT INFORMATION
  Report Type: Spontaneous
  Country: CH (occurrence: CH)
  Receive Date: 20211125
  Receipt Date: 20211229
  Transmission Date: 20220304
  Serious: Yes (Hospitalization)
  Sender: FDA-Public Use
  Company Number: CH-NOVARTISPH-NVSC2021CH267849

PATIENT
  Age: 14 Year
  Sex: Female

DRUGS (1)
  1. RITALIN [Suspect]
     Active Substance: METHYLPHENIDATE HYDROCHLORIDE
     Indication: Product used for unknown indication
     Dosage: 30 MG, ONCE/SINGLE
     Route: 065

REACTIONS (11)
  - Unresponsive to stimuli [Unknown]
  - Hallucination, visual [Unknown]
  - Dyskinesia [Unknown]
  - Dizziness [Unknown]
  - Headache [Unknown]
  - Nausea [Unknown]
  - Vomiting [Unknown]
  - Restlessness [Unknown]
  - Aggression [Unknown]
  - Intentional product misuse [Unknown]
  - Suspected counterfeit product [Unknown]
